FAERS Safety Report 9784020 (Version 3)
Quarter: 2014Q1

REPORT INFORMATION
  Report Type: Spontaneous
  Country: JP (occurrence: JP)
  Receive Date: 20131226
  Receipt Date: 20140103
  Transmission Date: 20141002
  Serious: Yes (Other)
  Sender: FDA-Public Use
  Company Number: JP-JNJFOC-20131213597

PATIENT
  Age: 41 Year
  Sex: Female

DRUGS (4)
  1. XEPLION [Suspect]
     Indication: RESTLESSNESS
     Route: 030
     Dates: start: 20131204
  2. RISPERIDONE [Concomitant]
     Route: 048
  3. BLONANSERIN [Concomitant]
     Route: 048
  4. FLUNITRAZEPAM [Concomitant]
     Route: 048

REACTIONS (4)
  - Neuroleptic malignant syndrome [Recovered/Resolved]
  - Blood sodium decreased [Recovered/Resolved]
  - Fall [Unknown]
  - Aspartate aminotransferase increased [Unknown]
